FAERS Safety Report 5535044-X (Version None)
Quarter: 2007Q4

REPORT INFORMATION
  Report Type: 
  Country: None (occurrence: None)
  Receive Date: 20071203
  Receipt Date: 20071115
  Transmission Date: 20080405
  Serious: Yes (Other)
  Sender: FDA-Public Use
  Company Number: 2007US002897

PATIENT
  Age: 55 Year
  Sex: Male

DRUGS (1)
  1. PROGRAF [Suspect]
     Indication: PROPHYLAXIS AGAINST GRAFT VERSUS HOST DISEASE
     Dosage: 1 MG, UID/QD

REACTIONS (13)
  - ACUTE GRAFT VERSUS HOST DISEASE IN INTESTINE [None]
  - ACUTE GRAFT VERSUS HOST DISEASE IN LIVER [None]
  - ACUTE GRAFT VERSUS HOST DISEASE IN SKIN [None]
  - CONDITION AGGRAVATED [None]
  - ENCEPHALOPATHY [None]
  - GRAFT VERSUS HOST DISEASE [None]
  - HAEMOLYTIC ANAEMIA [None]
  - HEADACHE [None]
  - INFLUENZA LIKE ILLNESS [None]
  - INTERSTITIAL LUNG DISEASE [None]
  - METAPNEUMOVIRUS INFECTION [None]
  - NASAL CONGESTION [None]
  - RHINORRHOEA [None]
